FAERS Safety Report 5814275-5 (Version None)
Quarter: 2008Q3

REPORT INFORMATION
  Report Type: 
  Country: None (occurrence: None)
  Receive Date: 20080715
  Receipt Date: 20080701
  Transmission Date: 20090109
  Serious: Yes (Other)
  Sender: FDA-Public Use
  Company Number: CLOF-1000215

PATIENT
  Age: 66 Year
  Sex: Male

DRUGS (8)
  1. CLOFARABINE BLINDED [Suspect]
     Indication: MYELOID LEUKAEMIA
     Dosage: BLINDED, INFORMATION WITHHELD; BLINDED, INFORMATOIN WITHHELD.
     Dates: start: 20080506, end: 20080510
  2. CLOFARABINE BLINDED [Suspect]
     Indication: MYELOID LEUKAEMIA
     Dosage: BLINDED, INFORMATION WITHHELD; BLINDED, INFORMATOIN WITHHELD.
     Dates: start: 20080603, end: 20080606
  3. CYTARABINE [Suspect]
     Indication: MYELOID LEUKAEMIA
     Dosage: 1 G/M2, QDX5, INTRAVENOUS; 1 G/M2, QDX4
     Route: 042
     Dates: start: 20080506, end: 20080510
  4. LEVAQUIN [Concomitant]
  5. NEXIUM (ESOMEPRAZOLE SODIUM) [Concomitant]
  6. FLUCONAZOLE [Concomitant]
  7. ATIVAN [Concomitant]
  8. THORAZINE [Concomitant]

REACTIONS (3)
  - EJECTION FRACTION DECREASED [None]
  - LEFT VENTRICULAR END-DIASTOLIC PRESSURE INCREASED [None]
  - VENTRICULAR HYPOKINESIA [None]
